FAERS Safety Report 12045834 (Version 2)
Quarter: 2016Q2

REPORT INFORMATION
  Report Type: Report from Study
  Country: JP (occurrence: JP)
  Receive Date: 20160208
  Receipt Date: 20160426
  Transmission Date: 20160815
  Serious: Yes (Hospitalization)
  Sender: FDA-Public Use
  Company Number: JP-ROCHE-1707806

PATIENT
  Age: 64 Year
  Sex: Female

DRUGS (3)
  1. ELPLAT [Concomitant]
     Active Substance: OXALIPLATIN
     Indication: COLON CANCER
     Dosage: DOSAGE IS UNCERTAIN. ?SEVEN COURSES
     Route: 041
     Dates: start: 20150811
  2. BEVACIZUMAB [Suspect]
     Active Substance: BEVACIZUMAB
     Indication: COLON CANCER
     Dosage: DOSAGE IS UNCERTAIN. ?SEVEN COURSES
     Route: 041
     Dates: start: 20150811
  3. CAPECITABINE. [Suspect]
     Active Substance: CAPECITABINE
     Indication: COLON CANCER
     Dosage: DOSAGE IS UNCERTAIN. ?SEVEN COURSES
     Route: 048
     Dates: start: 20150811

REACTIONS (1)
  - Fracture [Recovered/Resolved]

NARRATIVE: CASE EVENT DATE: 20160124
